FAERS Safety Report 24651168 (Version 8)
Quarter: 2025Q2

REPORT INFORMATION
  Report Type: Report from Study
  Country: US (occurrence: US)
  Receive Date: 20241122
  Receipt Date: 20250613
  Transmission Date: 20250716
  Serious: No
  Sender: ACADIA PHARMACEUTICALS
  Company Number: US-ACADIA PHARMACEUTICALS INC.-ACA-2024-TRF-007085

PATIENT

DRUGS (2)
  1. DAYBUE [Suspect]
     Active Substance: TROFINETIDE
     Indication: Rett syndrome
     Dosage: 24 MILLILITER, BID
     Route: 048
  2. DAYBUE [Suspect]
     Active Substance: TROFINETIDE
     Dosage: 24 MILLILITER, BID
     Route: 048

REACTIONS (4)
  - Seasonal allergy [Not Recovered/Not Resolved]
  - Drooling [Not Recovered/Not Resolved]
  - Diarrhoea [Recovering/Resolving]
  - Underdose [Not Recovered/Not Resolved]
